FAERS Safety Report 6192565-7 (Version None)
Quarter: 2009Q2

REPORT INFORMATION
  Report Type: 
  Country: None (occurrence: None)
  Receive Date: 20090518
  Receipt Date: 20090508
  Transmission Date: 20091009
  Serious: Yes (Hospitalization)
  Sender: FDA-Public Use
  Company Number: US-JNJFOC-20090502866

PATIENT
  Sex: Female

DRUGS (3)
  1. TYLENOL [Suspect]
  2. TYLENOL [Suspect]
     Indication: DRUG USE FOR UNKNOWN INDICATION
  3. ANALGESIC [Interacting]
     Indication: PAIN MANAGEMENT

REACTIONS (2)
  - APPARENT LIFE THREATENING EVENT [None]
  - DRUG INTERACTION [None]
